FAERS Safety Report 7414729-4 (Version None)
Quarter: 2011Q2

REPORT INFORMATION
  Report Type: 
  Country: None (occurrence: None)
  Receive Date: 20110406
  Receipt Date: 20110322
  Transmission Date: 20111010
  Serious: Yes (Other)
  Sender: FDA-Public Use
  Company Number: 2011MA002738

PATIENT
  Age: 34 Year
  Sex: Male

DRUGS (1)
  1. PHENYTOIN [Suspect]

REACTIONS (10)
  - CONJUNCTIVITIS [None]
  - SCLERITIS [None]
  - TUBERCULOSIS [None]
  - CORNEAL DISORDER [None]
  - STEVENS-JOHNSON SYNDROME [None]
  - OCULAR SURFACE DISEASE [None]
  - CONJUNCTIVAL SCAR [None]
  - CORNEAL NEOVASCULARISATION [None]
  - SYMBLEPHARON [None]
  - CORNEAL SCAR [None]
